FAERS Safety Report 11999913 (Version 1)
Quarter: 2016Q1

REPORT INFORMATION
  Report Type: Spontaneous
  Country: IE (occurrence: IE)
  Receive Date: 20160204
  Receipt Date: 20160204
  Transmission Date: 20160526
  Serious: Yes (Life-Threatening, Other)
  Sender: FDA-Public Use
  Company Number: IE-ACTAVIS-2015-29220

PATIENT
  Age: 60 Year
  Sex: Female
  Weight: 78 kg

DRUGS (8)
  1. GLUCOSE MONOHYDRATE [Suspect]
     Active Substance: DEXTROSE MONOHYDRATE
     Dosage: 250 ML, UNK
     Route: 041
     Dates: start: 20151210
  2. ZANTAC [Concomitant]
     Active Substance: RANITIDINE HYDROCHLORIDE
     Indication: PREMEDICATION
     Dosage: 150 MG, UNK
     Route: 065
  3. PIRITON [Concomitant]
     Active Substance: CHLORPHENIRAMINE MALEATE
     Indication: PREMEDICATION
     Route: 041
  4. PACLITAXEL (ATLLC) [Suspect]
     Active Substance: PACLITAXEL
     Indication: BREAST CANCER
     Dosage: 12.5 MG/M2, 175 MG/M2 ONCE Q 14 DAYS (348 MG IN GLUCOSE)
     Route: 041
     Dates: start: 20151223
  5. DEXAMETHASONE. [Concomitant]
     Active Substance: DEXAMETHASONE
     Indication: PREMEDICATION
     Dosage: 20 MG, 12 MIDNIGHT AND 6 AM
     Route: 065
  6. PACLITAXEL (ATLLC) [Suspect]
     Active Substance: PACLITAXEL
     Dosage: 12.5 MG/M2, 175 MG/M2 ONCE Q 14 DAYS (348 MG IN GLUCOSE)
     Route: 041
     Dates: start: 20151210
  7. GLUCOSE MONOHYDRATE [Suspect]
     Active Substance: DEXTROSE MONOHYDRATE
     Indication: MEDICATION DILUTION
     Dosage: 250 ML, UNK
     Route: 041
     Dates: start: 20151223
  8. ELTROXIN [Concomitant]
     Active Substance: LEVOTHYROXINE
     Indication: PRODUCT USED FOR UNKNOWN INDICATION
     Route: 065

REACTIONS (4)
  - Tachycardia [Unknown]
  - Oxygen saturation decreased [Unknown]
  - Hypotension [Recovering/Resolving]
  - Dyspnoea [Recovering/Resolving]

NARRATIVE: CASE EVENT DATE: 20151223
